FAERS Safety Report 5385481-1 (Version None)
Quarter: 2007Q3

REPORT INFORMATION
  Report Type: 
  Country: None (occurrence: None)
  Receive Date: 20070712
  Receipt Date: 20070706
  Transmission Date: 20080115
  Serious: Yes (Life-Threatening, Hospitalization)
  Sender: FDA-Public Use
  Company Number: GB-ASTRAZENECA-2007AC01240

PATIENT
  Age: 70 Year
  Sex: Male

DRUGS (3)
  1. LISINOPRIL [Suspect]
     Route: 048
  2. LIDOCAINE [Suspect]
     Indication: LOCAL ANAESTHESIA
     Route: 061
  3. PHENYLEPHRINE [Concomitant]
     Route: 061

REACTIONS (4)
  - ANGIOEDEMA [None]
  - CONVULSION [None]
  - RENAL FAILURE ACUTE [None]
  - SWOLLEN TONGUE [None]
